FAERS Safety Report 4977832-4 (Version None)
Quarter: 2006Q1

REPORT INFORMATION
  Report Type: 
  Country: None (occurrence: None)
  Receive Date: 20060215
  Receipt Date: 20041220
  Transmission Date: 20060701
  Serious: Yes (Hospitalization)
  Sender: FDA-Public Use
  Company Number: MC200400915

PATIENT
  Sex: Male

DRUGS (2)
  1. ANGIOMAX [Suspect]
     Dosage: SEE IMAGE
     Route: 040
     Dates: start: 20041217, end: 20041217
  2. ASPIRIN [Concomitant]

REACTIONS (1)
  - ARTERIAL THROMBOSIS [None]
